FAERS Safety Report 11545775 (Version 1)
Quarter: 2015Q3

REPORT INFORMATION
  Report Type: Spontaneous
  Country: US (occurrence: US)
  Receive Date: 20150903
  Receipt Date: 20150903
  Transmission Date: 20151125
  Serious: No
  Sender: FDA-Public Use
  Company Number: US-ELI_LILLY_AND_COMPANY-US201206003741

PATIENT
  Sex: Male

DRUGS (3)
  1. NOVOLIN R [Concomitant]
     Active Substance: INSULIN HUMAN
     Dosage: UNK, TID
  2. GLYBURIDE. [Concomitant]
     Active Substance: GLYBURIDE
  3. HUMALOG MIX75/25 [Suspect]
     Active Substance: INSULIN LISPRO
     Indication: DIABETES MELLITUS
     Dosage: 70 U, BID
     Dates: start: 201205

REACTIONS (2)
  - Blood glucose increased [Unknown]
  - Diarrhoea [Unknown]
